FAERS Safety Report 21859209 (Version 1)
Quarter: 2023Q1

REPORT INFORMATION
  Report Type: Spontaneous
  Country: CN (occurrence: CN)
  Receive Date: 20230113
  Receipt Date: 20230113
  Transmission Date: 20230418
  Serious: Yes (Other)
  Sender: FDA-Public Use
  Company Number: CN-MLMSERVICE-20221227-4006764-1

PATIENT
  Age: 32 Year
  Sex: Female

DRUGS (2)
  1. ETOPOSIDE [Suspect]
     Active Substance: ETOPOSIDE
     Indication: Gestational trophoblastic tumour
     Dosage: EVERY 3 WEEKS, 5 CYCLE
     Dates: start: 2017, end: 2017
  2. CISPLATIN [Suspect]
     Active Substance: CISPLATIN
     Indication: Gestational trophoblastic tumour
     Dosage: EVERY 3 WEEKS, 5 CYCLE
     Dates: start: 2017, end: 2017

REACTIONS (2)
  - Hepatotoxicity [Recovered/Resolved]
  - Diminished ovarian reserve [Recovered/Resolved]

NARRATIVE: CASE EVENT DATE: 20170101
